FAERS Safety Report 13596949 (Version 1)
Quarter: 2017Q2

REPORT INFORMATION
  Report Type: Spontaneous
  Country: US (occurrence: US)
  Receive Date: 20170531
  Receipt Date: 20170531
  Transmission Date: 20170830
  Serious: Yes (Other)
  Sender: FDA-Public Use
  Company Number: US-AMGEN-USASP2017067835

PATIENT
  Age: 81 Year
  Sex: Female
  Weight: 115.8 kg

DRUGS (25)
  1. NEULASTA [Suspect]
     Active Substance: PEGFILGRASTIM
     Indication: PRODUCT USED FOR UNKNOWN INDICATION
     Dosage: 6 MG, UNK
     Route: 058
  2. IMDUR [Concomitant]
     Active Substance: ISOSORBIDE MONONITRATE
     Dosage: UNK, QD (TAKE 1 TAB BY MOUTH DAILY)
     Route: 048
  3. ASPIRIN EC [Concomitant]
     Active Substance: ASPIRIN
     Dosage: QD (TAKE 1 TAB BY MOUTH DAILY)
     Route: 048
  4. BENADRYL [Concomitant]
     Active Substance: DIPHENHYDRAMINE HYDROCHLORIDE
     Indication: PRURITUS
     Dosage: 25 MG, Q6H (AS NEEDED OTC PRN ITCHING)
     Route: 048
  5. COMPAZINE [Concomitant]
     Active Substance: PROCHLORPERAZINE MALEATE
     Indication: NAUSEA
     Dosage: Q6H (TAKE 1 TAB BY MOUTH EVERY 6 HOURS AS NEEDED)
     Route: 048
  6. GLYCOLAX [Concomitant]
     Active Substance: POLYETHYLENE GLYCOL 3350
     Dosage: 17 G, BID, POWDER
     Route: 048
  7. SALBUTAMOL [Concomitant]
     Active Substance: ALBUTEROL
     Indication: WHEEZING
     Dosage: UNK, Q4H  (INHALE 1 PUFF AS DIRECTED EVERY 4 HOURS AS NEEDED)
  8. POTASSIUM CHLORIDE. [Concomitant]
     Active Substance: POTASSIUM CHLORIDE
     Dosage: UNK, QD (TAKE 2 TABS)
     Route: 048
  9. CARBOPLATIN. [Suspect]
     Active Substance: CARBOPLATIN
     Indication: MALIGNANT PERITONEAL NEOPLASM
     Dosage: UNK
     Route: 065
     Dates: start: 20161228
  10. NORCO [Concomitant]
     Active Substance: ACETAMINOPHEN\HYDROCODONE BITARTRATE
     Indication: PAIN
     Dosage: UNK, AS NECESSARY (10-325 MG TAKE 1-2 TABS BY MOUTH EVERY 6 HOURS AS NEEDED/ 1 TAB FOR MODERATE PAI)
     Route: 048
  11. NYSTOP [Concomitant]
     Active Substance: NYSTATIN
     Dosage: UNK, TID (APPLY TOPICALLY TO AFFECTED AREA THREE TIMES DAILY FOR 10 DAYS AS NEEDED)
     Route: 061
  12. MIRAPEX [Concomitant]
     Active Substance: PRAMIPEXOLE DIHYDROCHLORIDE
     Dosage: BID (TAKE 1 TAB BY MOUTH 2 TIMES DAILY)
     Route: 048
  13. ZOLOFT [Concomitant]
     Active Substance: SERTRALINE HYDROCHLORIDE
     Dosage: 100 MG STRENGTH, QD (TAKE 1 TABLET ALONG WITH A 100 MG TABLET TO EQUAL 125 MG TAKEN DAILY)
     Route: 048
  14. ZOFRAN [Concomitant]
     Active Substance: ONDANSETRON HYDROCHLORIDE
     Indication: NAUSEA
     Dosage: UNK UNK, Q8H (TAKE 1 TAB BY MOUTH EVERY 8 HOURS AS NEEDED)
     Route: 048
  15. OXYGEN. [Concomitant]
     Active Substance: OXYGEN
     Indication: CHRONIC RESPIRATORY FAILURE
     Dosage: UNK (TAKE 2 LITERS AT REST AND 4 LITERS WITH ACTIVITY)
     Route: 045
  16. PACLITAXEL. [Suspect]
     Active Substance: PACLITAXEL
     Indication: MALIGNANT PERITONEAL NEOPLASM
     Dosage: UNK
     Route: 065
     Dates: start: 20161228
  17. DURAGESIC [Concomitant]
     Active Substance: FENTANYL
     Indication: PAIN
     Dosage: UNK, 50 MCG/HR PLACE 1 PATCH ONTO THE SKIN EVERY 72 HOURS
  18. PEPCID [Concomitant]
     Active Substance: FAMOTIDINE
     Dosage: 40 MG, QD (TAKE 1 TABLET EVERY EVENING)
  19. ZOLOFT [Concomitant]
     Active Substance: SERTRALINE HYDROCHLORIDE
     Indication: ANXIETY
     Dosage: 25 MG STRENGTH, QD (TAKE 1 TABLET ALONG WITH A 100 MG TABLET TO EQUAL 125 MG TAKEN DAILY)
     Route: 048
  20. FOLVITE [Concomitant]
     Active Substance: FOLIC ACID
     Dosage: QD (TAKE 1 TAB BY MOUTH DAILY)
     Route: 048
  21. ANTIVERT [Concomitant]
     Active Substance: MECLIZINE HYDROCHLORIDE
     Indication: DIZZINESS
     Dosage: TID (TAKE 1 TAB BY MOUTH 3 TIMES DAILY AS NEEDED)
     Route: 048
  22. SLOW-MAG [Concomitant]
     Active Substance: MAGNESIUM CHLORIDE
     Indication: HYPOMAGNESAEMIA
     Dosage: UNK, BID (TAKE 1 TAB BY MOUTH 2 TIMES DAILY)
     Route: 048
  23. LASIX [Concomitant]
     Active Substance: FUROSEMIDE
     Dosage: UNK
  24. PROTONIX [Concomitant]
     Active Substance: PANTOPRAZOLE SODIUM
     Dosage: QD (TAKE 1 TAB BY MOUTH DAILY)
     Route: 048
  25. KLONOPIN [Concomitant]
     Active Substance: CLONAZEPAM
     Dosage: UNK (TAKE 1-2 TABS BY MOUTH NIGHTLY)
     Route: 048

REACTIONS (20)
  - Constipation [Unknown]
  - Platelet count decreased [Unknown]
  - Confusional state [Not Recovered/Not Resolved]
  - Walking aid user [Unknown]
  - Wrong technique in product usage process [Unknown]
  - Sleep apnoea syndrome [Unknown]
  - Erythema [Unknown]
  - Diarrhoea [Unknown]
  - Abdominal distension [Unknown]
  - Synovial cyst [Not Recovered/Not Resolved]
  - Dehydration [Unknown]
  - Accidental exposure to product [Unknown]
  - Dysstasia [Unknown]
  - Oedema peripheral [Unknown]
  - Mucosal inflammation [Unknown]
  - Vitamin B12 deficiency [Unknown]
  - Chronic respiratory failure [Not Recovered/Not Resolved]
  - Pancytopenia [Not Recovered/Not Resolved]
  - Fatigue [Not Recovered/Not Resolved]
  - Anaemia folate deficiency [Unknown]

NARRATIVE: CASE EVENT DATE: 201705
